FAERS Safety Report 16493514 (Version 2)
Quarter: 2019Q2

REPORT INFORMATION
  Report Type: Spontaneous
  Country: GB (occurrence: GB)
  Receive Date: 20190628
  Receipt Date: 20190628
  Transmission Date: 20190711
  Serious: Yes (Hospitalization, Disabling, Other)
  Sender: FDA-Public Use
  Company Number: GB-SUN PHARMACEUTICAL INDUSTRIES LTD-2019RR-212006

PATIENT
  Age: 65 Year
  Sex: Male

DRUGS (2)
  1. RIFAMPICIN [Concomitant]
     Active Substance: RIFAMPIN
     Indication: DEVICE RELATED INFECTION
     Dosage: ()
     Route: 065
     Dates: start: 201605
  2. CIPROFLOXACIN. [Suspect]
     Active Substance: CIPROFLOXACIN
     Indication: DEVICE RELATED INFECTION
     Dosage: 1500 MILLIGRAM, DAILY
     Route: 048
     Dates: start: 201605, end: 201609

REACTIONS (3)
  - Psychotic disorder [Recovering/Resolving]
  - Catatonia [Recovering/Resolving]
  - Confusional state [Recovering/Resolving]

NARRATIVE: CASE EVENT DATE: 201609
